FAERS Safety Report 22375549 (Version 1)
Quarter: 2023Q2

REPORT INFORMATION
  Report Type: Spontaneous
  Country: RU (occurrence: RU)
  Receive Date: 20230527
  Receipt Date: 20230527
  Transmission Date: 20230722
  Serious: Yes (Other)
  Sender: FDA-Public Use
  Company Number: RU-SUN PHARMACEUTICAL INDUSTRIES LTD-2023R1-388631

PATIENT
  Age: 38 Year
  Sex: Female

DRUGS (4)
  1. METHOTREXATE [Suspect]
     Active Substance: METHOTREXATE
     Indication: Chronic spontaneous urticaria
     Dosage: 10 MILLIGRAM, WEEKLY
     Route: 065
  2. METHOTREXATE [Suspect]
     Active Substance: METHOTREXATE
     Indication: Urticaria chronic
  3. PREDNISOLONE [Suspect]
     Active Substance: PREDNISOLONE
     Indication: Chronic spontaneous urticaria
     Dosage: 20 MILLIGRAM, DAILY
     Route: 065
  4. PREDNISOLONE [Suspect]
     Active Substance: PREDNISOLONE
     Indication: Urticaria chronic

REACTIONS (1)
  - Drug resistance [Unknown]
